FAERS Safety Report 20019077 (Version 2)
Quarter: 2021Q4

REPORT INFORMATION
  Report Type: Spontaneous
  Country: ES (occurrence: ES)
  Receive Date: 20211101
  Receipt Date: 20211220
  Transmission Date: 20220303
  Serious: Yes (Death, Hospitalization, Other)
  Sender: FDA-Public Use
  Company Number: ES-GRUNENTHAL-2021-267886

PATIENT
  Age: 74 Year
  Sex: Female

DRUGS (10)
  1. FENTANYL [Interacting]
     Active Substance: FENTANYL
     Indication: Breakthrough pain
     Dosage: 200 MICROGRAM, PRN, AS NEEDED
     Route: 065
     Dates: start: 20210216
  2. SERTRALINE [Interacting]
     Active Substance: SERTRALINE HYDROCHLORIDE
     Indication: Adjustment disorder with depressed mood
     Dosage: 50 MILLIGRAM, 1/DAY
     Route: 065
     Dates: start: 202102, end: 20210301
  3. TAPENTADOL [Suspect]
     Active Substance: TAPENTADOL
     Indication: Product used for unknown indication
     Dosage: UNK
     Route: 065
  4. PALEXIA [Interacting]
     Active Substance: TAPENTADOL HYDROCHLORIDE
     Indication: Pain
     Dosage: 50 MILLIGRAM, 2/DAY
     Route: 048
     Dates: start: 20201222, end: 20210216
  5. PALEXIA [Interacting]
     Active Substance: TAPENTADOL HYDROCHLORIDE
     Dosage: 200 MILLIGRAM, 2/DAY
     Route: 048
     Dates: start: 20210216, end: 202103
  6. ACETAMINOPHEN [Concomitant]
     Active Substance: ACETAMINOPHEN
     Indication: Pain
     Dosage: 1 GRAM, 3/DAY
     Route: 065
     Dates: start: 20201011, end: 20201222
  7. OXYCODONE [Concomitant]
     Active Substance: OXYCODONE
     Indication: Product used for unknown indication
     Dosage: UNK
     Route: 051
  8. METAMIZOLE [Concomitant]
     Active Substance: METAMIZOLE
     Indication: Pain
     Dosage: 575 MILLIGRAM, 3/DAY
     Route: 065
     Dates: start: 20201011, end: 20201222
  9. GABAPENTIN [Concomitant]
     Active Substance: GABAPENTIN
     Indication: Pain
     Dosage: 300 MILLIGRAM, 1/DAY
     Route: 065
     Dates: start: 20210216
  10. OCTREOTIDE [Concomitant]
     Active Substance: OCTREOTIDE
     Indication: Product used for unknown indication
     Dosage: UNK
     Route: 065

REACTIONS (10)
  - Neuroendocrine carcinoma [Fatal]
  - Serotonin syndrome [Unknown]
  - Hyperresponsive to stimuli [Recovering/Resolving]
  - Pelvic pain [Unknown]
  - Flushing [Unknown]
  - Vomiting [Unknown]
  - Restlessness [Unknown]
  - Drug interaction [Unknown]
  - Asthenia [Unknown]
  - Decreased appetite [Unknown]

NARRATIVE: CASE EVENT DATE: 20210312
